FAERS Safety Report 19553377 (Version 1)
Quarter: 2021Q3

REPORT INFORMATION
  Report Type: Spontaneous
  Country: US (occurrence: US)
  Receive Date: 20210714
  Receipt Date: 20210714
  Transmission Date: 20211014
  Serious: Yes (Other)
  Sender: FDA-Public Use
  Company Number: US-BTGSP-US-BTGSP-21-0093

PATIENT
  Age: 16 Year
  Sex: Male
  Weight: 103 kg

DRUGS (2)
  1. METHOTREXATE. [Suspect]
     Active Substance: METHOTREXATE
     Indication: ACUTE LYMPHOCYTIC LEUKAEMIA
     Dosage: 5 G/M2
     Route: 065
     Dates: start: 202106
  2. VORAXAZE [Suspect]
     Active Substance: GLUCARPIDASE
     Indication: TOXICITY TO VARIOUS AGENTS
     Dosage: 5000 UNITS
     Route: 065

REACTIONS (6)
  - Mucosal inflammation [Unknown]
  - Underdose [Unknown]
  - Laboratory test interference [Unknown]
  - Erosive oesophagitis [Unknown]
  - Off label use [Unknown]
  - Respiratory arrest [Unknown]
